FAERS Safety Report 5621125-9 (Version None)
Quarter: 2008Q1

REPORT INFORMATION
  Report Type: 
  Country: None (occurrence: None)
  Receive Date: 20080114
  Receipt Date: 20070130
  Transmission Date: 20080703
  Serious: Yes (Hospitalization, Disabling)
  Sender: FDA-Public Use
  Company Number: A03200700954

PATIENT
  Age: 63 Year
  Sex: Male
  Weight: 91.173 kg

DRUGS (22)
  1. PLAVIX [Suspect]
     Indication: MYOCARDIAL INFARCTION
     Dosage: 75 MG QD - ORAL
     Route: 048
     Dates: start: 20040923, end: 20061001
  2. PLAVIX [Suspect]
     Indication: MYOCARDIAL INFARCTION
     Dosage: ORAL
     Route: 048
     Dates: start: 20070223
  3. ASPIRIN [Suspect]
     Indication: MYOCARDIAL INFARCTION
     Dosage: 325 MG QD - ORAL
     Route: 048
     Dates: start: 20040923, end: 20060101
  4. ASPIRIN [Suspect]
     Indication: MYOCARDIAL INFARCTION
     Dosage: ORAL
     Route: 048
     Dates: start: 20061128
  5. PANTOPRAZOLE SODIUM [Concomitant]
  6. TRIAMTERENE AND HYDROCHLOROTHIAZIDE [Concomitant]
  7. ATORVASTATIN CALCIUM [Concomitant]
  8. AMLODIPINE BESILATE [Concomitant]
  9. METOPROLOL SUCCINATE [Concomitant]
  10. DESLORATADINE [Concomitant]
  11. TRIAMCINOLONE ACETONIDE [Concomitant]
  12. EPROSARTAN [Concomitant]
  13. NICOTINIC ACID [Concomitant]
  14. OLOPATADINE HYDROCHLORIDE [Concomitant]
  15. CALCIUM [Concomitant]
  16. FISH OIL [Concomitant]
  17. FOLIC ACID [Concomitant]
  18. VITAMIN CAP [Concomitant]
  19. ASCORBIC ACID [Concomitant]
  20. RAMIPRIL [Concomitant]
  21. ZOLPIDEM TARTRATE [Concomitant]
  22. PARACETAMOL [Concomitant]

REACTIONS (13)
  - ANAEMIA [None]
  - ASTHENIA [None]
  - DIARRHOEA HAEMORRHAGIC [None]
  - DYSPNOEA [None]
  - EXERCISE TOLERANCE DECREASED [None]
  - GASTRIC ULCER HAEMORRHAGE [None]
  - HYPERHIDROSIS [None]
  - HYPOVOLAEMIA [None]
  - NAUSEA [None]
  - PALLOR [None]
  - RENAL FAILURE ACUTE [None]
  - SYNCOPE [None]
  - VOMITING [None]
